FAERS Safety Report 7878487-1 (Version None)
Quarter: 2011Q4

REPORT INFORMATION
  Report Type: 
  Country: None (occurrence: None)
  Receive Date: 20111028
  Receipt Date: 20111020
  Transmission Date: 20120403
  Serious: Yes (Death)
  Sender: FDA-Public Use
  Company Number: DKLU1074154

PATIENT
  Age: 16 Month
  Sex: Male

DRUGS (5)
  1. SABRIL [Suspect]
     Indication: EPILEPSY
     Dosage: 325 MG MILLIGRAM(S), 2 IN 1 D, ORAL
     Route: 048
     Dates: start: 20110228
  2. SABRIL [Suspect]
     Indication: INFANTILE SPASMS
     Dosage: 325 MG MILLIGRAM(S), 2 IN 1 D, ORAL
     Route: 048
     Dates: start: 20110228
  3. ACTH [Concomitant]
  4. LAMOTRIGINE [Concomitant]
  5. LEVETIRACETAM [Concomitant]

REACTIONS (1)
  - DEATH [None]
